FAERS Safety Report 10465441 (Version 2)
Quarter: 2014Q4

REPORT INFORMATION
  Report Type: Not Available
  Country: US (occurrence: US)
  Receive Date: 20140919
  Receipt Date: 20141014
  Transmission Date: 20150528
  Serious: Yes (Death, Hospitalization)
  Sender: FDA-Public Use
  Company Number: US-ONYX-2014-2043

PATIENT
  Age: 66 Year
  Sex: Male

DRUGS (1)
  1. KYPROLIS [Suspect]
     Active Substance: CARFILZOMIB
     Indication: PLASMA CELL MYELOMA
     Route: 042
     Dates: start: 20140604, end: 20140619

REACTIONS (6)
  - Nausea [Unknown]
  - Anaemia [Unknown]
  - Plasma cell myeloma [Fatal]
  - Chronic kidney disease [Unknown]
  - Infection [Unknown]
  - Diarrhoea [Unknown]

NARRATIVE: CASE EVENT DATE: 20140704
